FAERS Safety Report 6829340-3 (Version None)
Quarter: 2010Q3

REPORT INFORMATION
  Report Type: 
  Country: None (occurrence: None)
  Receive Date: 20100709
  Receipt Date: 20070301
  Transmission Date: 20110219
  Serious: No
  Sender: FDA-Public Use
  Company Number: US-PFIZER INC-2007005128

PATIENT
  Sex: Female
  Weight: 61.23 kg

DRUGS (10)
  1. CHANTIX [Suspect]
     Indication: SMOKING CESSATION THERAPY
     Dates: start: 20070108
  2. WELLBUTRIN [Concomitant]
  3. METOPROLOL [Concomitant]
  4. RANITIDINE [Concomitant]
  5. KLONOPIN [Concomitant]
  6. FLEXERIL [Concomitant]
  7. LORTAB [Concomitant]
  8. TRAZODONE [Concomitant]
  9. REMERON [Concomitant]
     Dates: end: 20070101
  10. COUGH SYRUP [Concomitant]
     Indication: COUGH
     Dates: start: 20070108

REACTIONS (3)
  - COUGH [None]
  - DRUG ADMINISTRATION ERROR [None]
  - NERVOUSNESS [None]
